FAERS Safety Report 9730419 (Version 3)
Quarter: 2015Q3

REPORT INFORMATION
  Report Type: Spontaneous
  Country: US (occurrence: US)
  Receive Date: 20131202
  Receipt Date: 20150727
  Transmission Date: 20151125
  Serious: Yes (Other)
  Sender: FDA-Public Use
  Company Number: US-GILEAD-2008-0018655

PATIENT
  Age: 72 Year
  Sex: Male
  Weight: 54.88 kg

DRUGS (7)
  1. VITAMIN B COMPLEX [Concomitant]
     Active Substance: CYANOCOBALAMIN\DEXPANTHENOL\NIACINAMIDE\PYRIDOXINE HYDROCHLORIDE\RIBOFLAVIN 5^-PHOSPHATE SODIUM\THIAMINE HYDROCHLORIDE\VITAMIN B COMPLEX
  2. COMBIVENT MDI [Concomitant]
  3. BOOSTED REYATAZ [Suspect]
     Active Substance: ATAZANAVIR\RITONAVIR
     Dates: start: 20080702, end: 20081020
  4. TRUVADA [Suspect]
     Active Substance: EMTRICITABINE\TENOFOVIR DISOPROXIL FUMARATE
     Indication: HIV INFECTION
     Route: 048
     Dates: start: 20080702, end: 20081020
  5. RITONAVIR. [Suspect]
     Active Substance: RITONAVIR
     Dates: start: 20080702, end: 20081020
  6. QVAR MDI [Concomitant]
  7. NICOTINE. [Concomitant]
     Active Substance: NICOTINE

REACTIONS (1)
  - Acute kidney injury [Unknown]
